FAERS Safety Report 6555218-9 (Version None)
Quarter: 2010Q1

REPORT INFORMATION
  Report Type: 
  Country: None (occurrence: None)
  Receive Date: 20100128
  Receipt Date: 20100119
  Transmission Date: 20100710
  Serious: No
  Sender: FDA-Public Use
  Company Number: US-ASTRAZENECA-2009SE11145

PATIENT
  Age: 668 Month
  Sex: Female
  Weight: 74.8 kg

DRUGS (5)
  1. ENTECORT EC [Suspect]
     Indication: COLITIS
     Route: 048
     Dates: start: 20050101, end: 20090601
  2. DESMOPRESSIN [Concomitant]
     Indication: DIABETES INSIPIDUS
  3. VITAMINS WITH IRON [Concomitant]
  4. LACTASE [Concomitant]
  5. METROGEL [Concomitant]
     Indication: ROSACEA

REACTIONS (7)
  - DRY MOUTH [None]
  - DRY THROAT [None]
  - KERATOCONJUNCTIVITIS SICCA [None]
  - OROPHARYNGEAL PAIN [None]
  - POLYDIPSIA [None]
  - RENAL PAIN [None]
  - SINUS DISORDER [None]
